FAERS Safety Report 14175220 (Version 1)
Quarter: 2017Q4

REPORT INFORMATION
  Report Type: Spontaneous
  Country: US (occurrence: US)
  Receive Date: 20171109
  Receipt Date: 20171109
  Transmission Date: 20180321
  Serious: No
  Sender: FDA-Public Use
  Company Number: PHEH2017US035431

PATIENT
  Sex: Male

DRUGS (1)
  1. BUDESONIDE SANDOZ [Suspect]
     Active Substance: BUDESONIDE
     Indication: PRODUCT USED FOR UNKNOWN INDICATION
     Route: 055

REACTIONS (4)
  - Cough [Unknown]
  - Lung disorder [Unknown]
  - Sneezing [Unknown]
  - Lacrimation increased [Unknown]
